FAERS Safety Report 6199654-1 (Version None)
Quarter: 2009Q2

REPORT INFORMATION
  Report Type: 
  Country: None (occurrence: None)
  Receive Date: 20090520
  Receipt Date: 20090520
  Transmission Date: 20091009
  Serious: No
  Sender: FDA-Public Use
  Company Number: None

PATIENT
  Sex: Female

DRUGS (2)
  1. HYDROCODONE BITARTRATE [Suspect]
     Indication: INTERVERTEBRAL DISC PROTRUSION
     Dosage: ONCE Q6 ORAL
     Route: 048
  2. HYDROCODONE BITARTRATE [Suspect]
     Indication: PAIN
     Dosage: ONCE Q6 ORAL
     Route: 048

REACTIONS (2)
  - DRUG INEFFECTIVE [None]
  - PRODUCT SUBSTITUTION ISSUE [None]
